FAERS Safety Report 9373453 (Version 2)
Quarter: 2013Q3

REPORT INFORMATION
  Report Type: Spontaneous
  Country: US (occurrence: US)
  Receive Date: 20130627
  Receipt Date: 20130827
  Transmission Date: 20140515
  Serious: No
  Sender: FDA-Public Use
  Company Number: US-009507513-1306USA012060

PATIENT
  Age: 66 Year
  Sex: Male
  Weight: 65.76 kg

DRUGS (4)
  1. TICE BCG LIVE [Suspect]
     Indication: BLADDER CANCER
     Dosage: UNK
     Route: 043
     Dates: start: 201103, end: 20110418
  2. ISONIAZID [Concomitant]
     Dosage: UNK
     Dates: start: 20130801
  3. RIFAMPIN [Concomitant]
     Dosage: UNK
     Dates: start: 20130801
  4. LOVENOX [Concomitant]
     Dosage: 500 MG, UNK
     Route: 048
     Dates: start: 20130617, end: 20130725

REACTIONS (4)
  - Bacterial test positive [Not Recovered/Not Resolved]
  - Bladder granuloma [Not Recovered/Not Resolved]
  - Bladder injury [Not Recovered/Not Resolved]
  - Dysuria [Not Recovered/Not Resolved]
